FAERS Safety Report 23213487 (Version 2)
Quarter: 2023Q4

REPORT INFORMATION
  Report Type: Report from Study
  Country: JP (occurrence: JP)
  Receive Date: 20231121
  Receipt Date: 20231127
  Transmission Date: 20240109
  Serious: No
  Sender: FDA-Public Use
  Company Number: JP-SERVIER-S23013111

PATIENT
  Age: 67 Year
  Sex: Male
  Weight: 53 kg

DRUGS (78)
  1. ONIVYDE [Suspect]
     Active Substance: IRINOTECAN HYDROCHLORIDE
     Indication: Pancreatic carcinoma
     Dosage: 42 MG/M2
     Route: 065
     Dates: start: 20220217, end: 20220217
  2. ONIVYDE [Suspect]
     Active Substance: IRINOTECAN HYDROCHLORIDE
     Dosage: 42 MG/M2
     Route: 065
     Dates: start: 20220303, end: 20220303
  3. ONIVYDE [Suspect]
     Active Substance: IRINOTECAN HYDROCHLORIDE
     Dosage: 42 MG/M2
     Route: 065
     Dates: start: 20220318, end: 20220318
  4. ONIVYDE [Suspect]
     Active Substance: IRINOTECAN HYDROCHLORIDE
     Dosage: 42 MG/M2
     Route: 065
     Dates: start: 20220408, end: 20220408
  5. ONIVYDE [Suspect]
     Active Substance: IRINOTECAN HYDROCHLORIDE
     Dosage: 42 MG/M2
     Route: 065
     Dates: start: 20220422, end: 20220422
  6. ONIVYDE [Suspect]
     Active Substance: IRINOTECAN HYDROCHLORIDE
     Dosage: 42 MG/M2
     Route: 065
     Dates: start: 20220516, end: 20220516
  7. ONIVYDE [Suspect]
     Active Substance: IRINOTECAN HYDROCHLORIDE
     Dosage: 42 MG/M2
     Route: 065
     Dates: start: 20220603, end: 20220603
  8. ONIVYDE [Suspect]
     Active Substance: IRINOTECAN HYDROCHLORIDE
     Dosage: 42 MG/M2
     Route: 065
     Dates: start: 20220617, end: 20220617
  9. ONIVYDE [Suspect]
     Active Substance: IRINOTECAN HYDROCHLORIDE
     Dosage: 42 MG/M2
     Route: 065
     Dates: start: 20220701, end: 20220701
  10. ONIVYDE [Suspect]
     Active Substance: IRINOTECAN HYDROCHLORIDE
     Dosage: 42 MG/M2
     Route: 065
     Dates: start: 20220722, end: 20220722
  11. ONIVYDE [Suspect]
     Active Substance: IRINOTECAN HYDROCHLORIDE
     Dosage: 42 MG/M2
     Route: 065
     Dates: start: 20220805, end: 20220805
  12. ONIVYDE [Suspect]
     Active Substance: IRINOTECAN HYDROCHLORIDE
     Dosage: 42 MG/M2
     Route: 065
     Dates: start: 20220819, end: 20220819
  13. ONIVYDE [Suspect]
     Active Substance: IRINOTECAN HYDROCHLORIDE
     Dosage: 42 MG/M2
     Route: 065
     Dates: start: 20220916, end: 20220916
  14. ONIVYDE [Suspect]
     Active Substance: IRINOTECAN HYDROCHLORIDE
     Dosage: 42 MG/M2
     Route: 065
     Dates: start: 20221004, end: 20221004
  15. ONIVYDE [Suspect]
     Active Substance: IRINOTECAN HYDROCHLORIDE
     Dosage: 42 MG/M2
     Route: 065
     Dates: start: 20221104, end: 20221104
  16. ONIVYDE [Suspect]
     Active Substance: IRINOTECAN HYDROCHLORIDE
     Dosage: 42 MG/M2
     Route: 065
     Dates: start: 20221118, end: 20221118
  17. ONIVYDE [Suspect]
     Active Substance: IRINOTECAN HYDROCHLORIDE
     Dosage: 42 MG/M2
     Route: 065
     Dates: start: 20221202, end: 20221202
  18. ONIVYDE [Suspect]
     Active Substance: IRINOTECAN HYDROCHLORIDE
     Dosage: 42 MG/M2
     Route: 065
     Dates: start: 20221216, end: 20221216
  19. ONIVYDE [Suspect]
     Active Substance: IRINOTECAN HYDROCHLORIDE
     Dosage: 42 MG/M2
     Route: 065
     Dates: start: 20230113, end: 20230113
  20. ONIVYDE [Suspect]
     Active Substance: IRINOTECAN HYDROCHLORIDE
     Dosage: 42 MG/M2
     Route: 065
     Dates: start: 20230127, end: 20230127
  21. ONIVYDE [Suspect]
     Active Substance: IRINOTECAN HYDROCHLORIDE
     Dosage: 42 MG/M2
     Route: 065
     Dates: start: 20230210, end: 20230210
  22. ONIVYDE [Suspect]
     Active Substance: IRINOTECAN HYDROCHLORIDE
     Dosage: 42 MG/M2
     Route: 065
     Dates: start: 20230303, end: 20230303
  23. ONIVYDE [Suspect]
     Active Substance: IRINOTECAN HYDROCHLORIDE
     Dosage: 42 MG/M2
     Route: 065
     Dates: start: 20230317, end: 20230317
  24. ONIVYDE [Suspect]
     Active Substance: IRINOTECAN HYDROCHLORIDE
     Dosage: 42 MG/M2
     Route: 065
     Dates: start: 20230331, end: 20230331
  25. ONIVYDE [Suspect]
     Active Substance: IRINOTECAN HYDROCHLORIDE
     Dosage: 42 MG/M2
     Route: 065
     Dates: start: 20230421, end: 20230421
  26. LEVOLEUCOVORIN CALCIUM [Concomitant]
     Active Substance: LEVOLEUCOVORIN CALCIUM
     Indication: Pancreatic carcinoma
     Dosage: 200 MG/M2
     Dates: start: 20220217, end: 20220217
  27. LEVOLEUCOVORIN CALCIUM [Concomitant]
     Active Substance: LEVOLEUCOVORIN CALCIUM
     Dosage: 200 MG/M2
     Dates: start: 20220303, end: 20220303
  28. LEVOLEUCOVORIN CALCIUM [Concomitant]
     Active Substance: LEVOLEUCOVORIN CALCIUM
     Dosage: 200 MG/M2
     Dates: start: 20220318, end: 20220318
  29. LEVOLEUCOVORIN CALCIUM [Concomitant]
     Active Substance: LEVOLEUCOVORIN CALCIUM
     Dosage: 200 MG/M2
     Dates: start: 20220408, end: 20220408
  30. LEVOLEUCOVORIN CALCIUM [Concomitant]
     Active Substance: LEVOLEUCOVORIN CALCIUM
     Dosage: 200 MG/M2
     Dates: start: 20220422, end: 20220422
  31. LEVOLEUCOVORIN CALCIUM [Concomitant]
     Active Substance: LEVOLEUCOVORIN CALCIUM
     Dosage: 200 MG/M2
     Dates: start: 20220516, end: 20220516
  32. LEVOLEUCOVORIN CALCIUM [Concomitant]
     Active Substance: LEVOLEUCOVORIN CALCIUM
     Dosage: 200 MG/M2
     Dates: start: 20220603, end: 20220603
  33. LEVOLEUCOVORIN CALCIUM [Concomitant]
     Active Substance: LEVOLEUCOVORIN CALCIUM
     Dosage: 200 MG/M2
     Dates: start: 20220617, end: 20220617
  34. LEVOLEUCOVORIN CALCIUM [Concomitant]
     Active Substance: LEVOLEUCOVORIN CALCIUM
     Dosage: 200 MG/M2
     Dates: start: 20220701, end: 20220701
  35. LEVOLEUCOVORIN CALCIUM [Concomitant]
     Active Substance: LEVOLEUCOVORIN CALCIUM
     Dosage: 200 MG/M2
     Dates: start: 20220722, end: 20220722
  36. LEVOLEUCOVORIN CALCIUM [Concomitant]
     Active Substance: LEVOLEUCOVORIN CALCIUM
     Dosage: 200 MG/M2
     Dates: start: 20220805, end: 20220805
  37. LEVOLEUCOVORIN CALCIUM [Concomitant]
     Active Substance: LEVOLEUCOVORIN CALCIUM
     Dosage: 200 MG/M2
     Dates: start: 20220819, end: 20220819
  38. LEVOLEUCOVORIN CALCIUM [Concomitant]
     Active Substance: LEVOLEUCOVORIN CALCIUM
     Dosage: 200 MG/M2
     Dates: start: 20220916, end: 20220916
  39. LEVOLEUCOVORIN CALCIUM [Concomitant]
     Active Substance: LEVOLEUCOVORIN CALCIUM
     Dosage: 200 MG/M2
     Dates: start: 20221004, end: 20221004
  40. LEVOLEUCOVORIN CALCIUM [Concomitant]
     Active Substance: LEVOLEUCOVORIN CALCIUM
     Dosage: 200 MG/M2
     Dates: start: 20221104, end: 20221104
  41. LEVOLEUCOVORIN CALCIUM [Concomitant]
     Active Substance: LEVOLEUCOVORIN CALCIUM
     Dosage: 200 MG/M2
     Dates: start: 20221118, end: 20221118
  42. LEVOLEUCOVORIN CALCIUM [Concomitant]
     Active Substance: LEVOLEUCOVORIN CALCIUM
     Dosage: 200 MG/M2
     Dates: start: 20221202, end: 20221202
  43. LEVOLEUCOVORIN CALCIUM [Concomitant]
     Active Substance: LEVOLEUCOVORIN CALCIUM
     Dosage: 200 MG/M2
     Dates: start: 20221216, end: 20221216
  44. LEVOLEUCOVORIN CALCIUM [Concomitant]
     Active Substance: LEVOLEUCOVORIN CALCIUM
     Dosage: 200 MG/M2
     Dates: start: 20230113, end: 20230113
  45. LEVOLEUCOVORIN CALCIUM [Concomitant]
     Active Substance: LEVOLEUCOVORIN CALCIUM
     Dosage: 200 MG/M2
     Dates: start: 20230127, end: 20230127
  46. LEVOLEUCOVORIN CALCIUM [Concomitant]
     Active Substance: LEVOLEUCOVORIN CALCIUM
     Dosage: 200 MG/M2
     Dates: start: 20230210, end: 20230210
  47. LEVOLEUCOVORIN CALCIUM [Concomitant]
     Active Substance: LEVOLEUCOVORIN CALCIUM
     Dosage: 200 MG/M2
     Dates: start: 20230303, end: 20230303
  48. LEVOLEUCOVORIN CALCIUM [Concomitant]
     Active Substance: LEVOLEUCOVORIN CALCIUM
     Dosage: 200 MG/M2
     Dates: start: 20230317, end: 20230317
  49. LEVOLEUCOVORIN CALCIUM [Concomitant]
     Active Substance: LEVOLEUCOVORIN CALCIUM
     Dosage: 200 MG/M2
     Dates: start: 20230331, end: 20230331
  50. LEVOLEUCOVORIN CALCIUM [Concomitant]
     Active Substance: LEVOLEUCOVORIN CALCIUM
     Dosage: 200 MG/M2
     Dates: start: 20230421, end: 20230421
  51. FLUOROURACIL [Concomitant]
     Active Substance: FLUOROURACIL
     Indication: Pancreatic carcinoma
     Dosage: 2400 MG/M2
     Dates: start: 20220217, end: 20220219
  52. FLUOROURACIL [Concomitant]
     Active Substance: FLUOROURACIL
     Dosage: 2400 MG/M2
     Dates: start: 20220303, end: 20220305
  53. FLUOROURACIL [Concomitant]
     Active Substance: FLUOROURACIL
     Dosage: 2400 MG/M2
     Dates: start: 20220318, end: 20220320
  54. FLUOROURACIL [Concomitant]
     Active Substance: FLUOROURACIL
     Dosage: 1920 MG/M2
     Dates: start: 20220408, end: 20220410
  55. FLUOROURACIL [Concomitant]
     Active Substance: FLUOROURACIL
     Dosage: 1920 MG/M2
     Dates: start: 20220422, end: 20220422
  56. FLUOROURACIL [Concomitant]
     Active Substance: FLUOROURACIL
     Dosage: 1920 MG/M2
     Dates: start: 20220516, end: 20220518
  57. FLUOROURACIL [Concomitant]
     Active Substance: FLUOROURACIL
     Dosage: 1920 MG/M2
     Dates: start: 20220603, end: 20220605
  58. FLUOROURACIL [Concomitant]
     Active Substance: FLUOROURACIL
     Dosage: 1920 MG/M2
     Dates: start: 20220617, end: 20220619
  59. FLUOROURACIL [Concomitant]
     Active Substance: FLUOROURACIL
     Dosage: 1920 MG/M2
     Dates: start: 20220701, end: 20220703
  60. FLUOROURACIL [Concomitant]
     Active Substance: FLUOROURACIL
     Dosage: 1920 MG/M2
     Dates: start: 20220722, end: 20220724
  61. FLUOROURACIL [Concomitant]
     Active Substance: FLUOROURACIL
     Dosage: 1920 MG/M2
     Dates: start: 20220805, end: 20220807
  62. FLUOROURACIL [Concomitant]
     Active Substance: FLUOROURACIL
     Dosage: 1920 MG/M2
     Dates: start: 20220819, end: 20220821
  63. FLUOROURACIL [Concomitant]
     Active Substance: FLUOROURACIL
     Dosage: 1920 MG/M2
     Dates: start: 20220916, end: 20220918
  64. FLUOROURACIL [Concomitant]
     Active Substance: FLUOROURACIL
     Dosage: 1920 MG/M2
     Dates: start: 20221004, end: 20221006
  65. FLUOROURACIL [Concomitant]
     Active Substance: FLUOROURACIL
     Dosage: 1920 MG/M2
     Dates: start: 20221104, end: 20221106
  66. FLUOROURACIL [Concomitant]
     Active Substance: FLUOROURACIL
     Dosage: 1920 MG/M2
     Dates: start: 20221118, end: 20221120
  67. FLUOROURACIL [Concomitant]
     Active Substance: FLUOROURACIL
     Dosage: 1442 MG/M2
     Dates: start: 20221202, end: 20221204
  68. FLUOROURACIL [Concomitant]
     Active Substance: FLUOROURACIL
     Dosage: 1442 MG/M2
     Dates: start: 20221216, end: 20221218
  69. FLUOROURACIL [Concomitant]
     Active Substance: FLUOROURACIL
     Dosage: 1442 MG/M2
     Dates: start: 20230113, end: 20230115
  70. FLUOROURACIL [Concomitant]
     Active Substance: FLUOROURACIL
     Dosage: 1442 MG/M2
     Dates: start: 20230127, end: 20230129
  71. FLUOROURACIL [Concomitant]
     Active Substance: FLUOROURACIL
     Dosage: 1442 MG/M2
     Dates: start: 20230210, end: 20230212
  72. FLUOROURACIL [Concomitant]
     Active Substance: FLUOROURACIL
     Dosage: 1442 MG/M2
     Dates: start: 20230303, end: 20230305
  73. FLUOROURACIL [Concomitant]
     Active Substance: FLUOROURACIL
     Dosage: 1442 MG/M2
     Dates: start: 20230317, end: 20230319
  74. FLUOROURACIL [Concomitant]
     Active Substance: FLUOROURACIL
     Dosage: 1442 MG/M2
     Dates: start: 20230331, end: 20230402
  75. FLUOROURACIL [Concomitant]
     Active Substance: FLUOROURACIL
     Dosage: 1442 MG/M2
     Dates: start: 20230421, end: 20230423
  76. PALONOSETRON [Concomitant]
     Active Substance: PALONOSETRON
     Indication: Chemotherapy side effect prophylaxis
     Dosage: UNK
  77. DEXAMETHASONE [Concomitant]
     Active Substance: DEXAMETHASONE
     Dosage: UNK
  78. APREPITANT [Concomitant]
     Active Substance: APREPITANT
     Dosage: UNK

REACTIONS (2)
  - Myelosuppression [Recovered/Resolved]
  - Off label use [Recovered/Resolved]

NARRATIVE: CASE EVENT DATE: 20220217
